FAERS Safety Report 25700315 (Version 4)
Quarter: 2025Q4

REPORT INFORMATION
  Report Type: Spontaneous
  Country: US (occurrence: US)
  Receive Date: 20250819
  Receipt Date: 20251107
  Transmission Date: 20260118
  Serious: Yes (Other)
  Sender: MALLINCKRODT
  Company Number: US-MALLINCKRODT-MNK202504899

PATIENT
  Age: 78 Year
  Sex: Female

DRUGS (3)
  1. CORTICOTROPIN [Suspect]
     Active Substance: CORTICOTROPIN
     Indication: Rheumatoid arthritis
     Dosage: 40 UNITS
     Route: 058
     Dates: start: 202501
  2. CORTICOTROPIN [Suspect]
     Active Substance: CORTICOTROPIN
     Dosage: 80 UNITS
     Route: 058
     Dates: start: 2025
  3. SIMPONI ARIA [Concomitant]
     Active Substance: GOLIMUMAB
     Dosage: UNKNOWN

REACTIONS (7)
  - Rheumatoid arthritis [Unknown]
  - Hypertension [Unknown]
  - Atrial fibrillation [Unknown]
  - Tachycardia [Not Recovered/Not Resolved]
  - Scleral discolouration [Unknown]
  - Insomnia [Unknown]
  - Drug ineffective [Unknown]

NARRATIVE: CASE EVENT DATE: 20250101
